FAERS Safety Report 15851679 (Version 2)
Quarter: 2019Q1

REPORT INFORMATION
  Report Type: Spontaneous
  Country: PL (occurrence: PL)
  Receive Date: 20190122
  Receipt Date: 20190328
  Transmission Date: 20190417
  Serious: Yes (Other)
  Sender: FDA-Public Use
  Company Number: PL-ACCORD-062730

PATIENT
  Sex: Female

DRUGS (3)
  1. FUROSEMIDE. [Suspect]
     Active Substance: FUROSEMIDE
     Indication: FOCAL SEGMENTAL GLOMERULOSCLEROSIS
     Dosage: FUROSEMIDE 3 X 1 TABLET
  2. NITRENDIPINE [Suspect]
     Active Substance: NITRENDIPINE
     Indication: FOCAL SEGMENTAL GLOMERULOSCLEROSIS
     Dosage: MAINTAINED AT DOSE OF 2 X 10 MG
     Route: 048
  3. POTASSIUM [Suspect]
     Active Substance: POTASSIUM
     Indication: FOCAL SEGMENTAL GLOMERULOSCLEROSIS
     Dosage: ORAL SUPPLEMENTATION
     Route: 048

REACTIONS (2)
  - Maternal exposure during pregnancy [Unknown]
  - Premature delivery [Unknown]
